FAERS Safety Report 18783915 (Version 2)
Quarter: 2021Q1

REPORT INFORMATION
  Report Type: Spontaneous
  Country: AU (occurrence: AU)
  Receive Date: 20210125
  Receipt Date: 20210210
  Transmission Date: 20210419
  Serious: No
  Sender: FDA-Public Use
  Company Number: AU-BAYER-2021-035361

PATIENT
  Age: 47 Year
  Sex: Female

DRUGS (1)
  1. ADEMPAS [Suspect]
     Active Substance: RIOCIGUAT
     Dosage: UNK

REACTIONS (6)
  - Influenza like illness [Recovered/Resolved]
  - Rhinorrhoea [Recovered/Resolved]
  - Pain [Recovered/Resolved]
  - Therapeutic response unexpected [None]
  - Malaise [Recovered/Resolved]
  - Oropharyngeal pain [Recovered/Resolved]

NARRATIVE: CASE EVENT DATE: 202002
